FAERS Safety Report 20429602 (Version 1)
Quarter: 2022Q1

REPORT INFORMATION
  Report Type: Report from Study
  Country: US (occurrence: US)
  Receive Date: 20220204
  Receipt Date: 20220204
  Transmission Date: 20220423
  Serious: Yes (Hospitalization)
  Sender: FDA-Public Use
  Company Number: 19P-163-2675696-00

PATIENT

DRUGS (10)
  1. ONCASPAR [Suspect]
     Active Substance: PEGASPARGASE
     Indication: Acute lymphocytic leukaemia
     Dosage: 2385 IU, ON DAY 1 AND DAY 15
     Route: 042
     Dates: start: 20190205
  2. VENETOCLAX [Suspect]
     Active Substance: VENETOCLAX
     Indication: Acute lymphocytic leukaemia
     Dosage: 100 MG, QD
     Route: 048
     Dates: start: 20190205, end: 20190208
  3. VENETOCLAX [Suspect]
     Active Substance: VENETOCLAX
     Dosage: 400 MG, QD
     Route: 048
     Dates: end: 20190219
  4. NAVITOCLAX [Suspect]
     Active Substance: NAVITOCLAX
     Indication: Acute lymphocytic leukaemia
     Dosage: 100 MG, QD
     Route: 048
     Dates: start: 20190207, end: 20190219
  5. DEXAMETHASONE [Suspect]
     Active Substance: DEXAMETHASONE
     Indication: Acute lymphocytic leukaemia
     Dosage: 4 MG, QD, DAYS 1-5 AND 15-19
     Route: 048
     Dates: start: 20190213, end: 20190217
  6. VINCRISTINE [Suspect]
     Active Substance: VINCRISTINE
     Indication: Acute lymphocytic leukaemia
     Dosage: 2 MG, WEEKLY, ON D1, D8, D15, D22
     Route: 042
     Dates: start: 20190213
  7. COLACE [Concomitant]
     Active Substance: DOCUSATE SODIUM
     Indication: Constipation prophylaxis
     Dosage: 100 MG, BID
     Route: 048
     Dates: start: 20190204, end: 20190208
  8. COLACE [Concomitant]
     Active Substance: DOCUSATE SODIUM
     Dosage: 100 MG, PRN
     Route: 048
     Dates: start: 20190211, end: 20190214
  9. PEPCID [Concomitant]
     Active Substance: FAMOTIDINE
     Indication: Stress ulcer
     Dosage: 40 MG, BID
     Route: 048
     Dates: start: 20190204, end: 20190209
  10. PEPCID [Concomitant]
     Active Substance: FAMOTIDINE
     Dosage: 20 MG, QD
     Route: 048
     Dates: start: 20190212, end: 20190214

REACTIONS (1)
  - Abdominal pain upper [Recovered/Resolved]

NARRATIVE: CASE EVENT DATE: 20190219
